FAERS Safety Report 21268078 (Version 3)
Quarter: 2022Q3

REPORT INFORMATION
  Report Type: Report from Study
  Country: JP (occurrence: JP)
  Receive Date: 20220829
  Receipt Date: 20220925
  Transmission Date: 20221027
  Serious: Yes (Hospitalization, Other)
  Sender: FDA-Public Use
  Company Number: JP-NOVARTISPH-NVSJ2022JP096310

PATIENT
  Age: 27 Year
  Sex: Female
  Weight: 54 kg

DRUGS (7)
  1. ILARIS [Suspect]
     Active Substance: CANAKINUMAB
     Indication: Familial mediterranean fever
     Dosage: 150 MG
     Route: 058
     Dates: start: 20220608
  2. ILARIS [Suspect]
     Active Substance: CANAKINUMAB
     Dosage: 150 MG
     Route: 058
     Dates: start: 20220711
  3. COLCHICINE [Concomitant]
     Active Substance: COLCHICINE
     Indication: Familial mediterranean fever
     Dosage: 1 MG
     Route: 048
     Dates: start: 2018
  4. COLCHICINE [Concomitant]
     Active Substance: COLCHICINE
     Dosage: 4 MG
     Route: 048
     Dates: start: 2020
  5. COLCHICINE [Concomitant]
     Active Substance: COLCHICINE
     Dosage: 3 MG
     Route: 048
     Dates: start: 20220608, end: 20220611
  6. COLCHICINE [Concomitant]
     Active Substance: COLCHICINE
     Dosage: 1.5 MG
     Route: 048
     Dates: start: 20220612, end: 20220704
  7. COLCHICINE [Concomitant]
     Active Substance: COLCHICINE
     Dosage: 2.5 MG
     Route: 048
     Dates: start: 20220705

REACTIONS (3)
  - Seizure [Recovering/Resolving]
  - Blood creatine phosphokinase increased [Recovering/Resolving]
  - Platelet count decreased [Unknown]

NARRATIVE: CASE EVENT DATE: 20220711
